FAERS Safety Report 9220331 (Version 1)
Quarter: 2013Q2

REPORT INFORMATION
  Report Type: Spontaneous
  Country: GB (occurrence: None)
  Receive Date: 20130405
  Receipt Date: 20130405
  Transmission Date: 20140414
  Serious: Yes (Other)
  Sender: FDA-Public Use
  Company Number: AUR-APL-2013-02654

PATIENT
  Age: 50 Year
  Sex: Female
  Weight: 106 kg

DRUGS (6)
  1. SERTRALINE (SERTRALINE) (SERTRALINE) [Suspect]
     Indication: ANXIETY
     Route: 048
  2. SERTRALINE (SERTRALINE) (SERTRALINE) [Suspect]
     Indication: DEPRESSION
     Route: 048
  3. OLANZAPINE (OLANZAPINE) [Concomitant]
  4. PROCYCLIDINE (PROCYCLIDINE) [Concomitant]
  5. SIMVASTATIN (SIMVASTATIN) [Concomitant]
  6. SODIUM VALPROATE (VALPROATE SODIUM) [Concomitant]

REACTIONS (2)
  - Rectal haemorrhage [None]
  - Colitis ulcerative [None]
